FAERS Safety Report 4546328-6 (Version None)
Quarter: 2005Q1

REPORT INFORMATION
  Report Type: 
  Country: None (occurrence: None)
  Receive Date: 20050103
  Receipt Date: 20041209
  Transmission Date: 20050727
  Serious: Yes (Hospitalization, Other)
  Sender: FDA-Public Use
  Company Number: USA041184436

PATIENT
  Age: 74 Year
  Sex: Male
  Weight: 55 kg

DRUGS (5)
  1. CYMBALTA [Suspect]
     Indication: DEPRESSION
     Dosage: 30 MG/ 2 DAY
     Dates: start: 20041118
  2. MARINOL [Concomitant]
  3. PROTONIX [Concomitant]
  4. TEMAZEPAM [Concomitant]
  5. LEXAPRO [Concomitant]

REACTIONS (6)
  - ABNORMAL BEHAVIOUR [None]
  - ACTIVITIES OF DAILY LIVING IMPAIRED [None]
  - CONDITION AGGRAVATED [None]
  - DEPRESSION [None]
  - SOMNOLENCE [None]
  - TREMOR [None]
